FAERS Safety Report 7691502-3 (Version None)
Quarter: 2011Q3

REPORT INFORMATION
  Report Type: 
  Country: None (occurrence: None)
  Receive Date: 20110818
  Receipt Date: 20110812
  Transmission Date: 20111222
  Serious: Yes (Other)
  Sender: FDA-Public Use
  Company Number: FR-PFIZER INC-2011177175

PATIENT
  Age: 58 Year
  Sex: Female

DRUGS (26)
  1. MEDIATOR [Suspect]
     Dosage: 150 MG, 1X/DAY
     Route: 048
     Dates: start: 19790519, end: 20040219
  2. FLECAINIDE ACETATE [Suspect]
     Dosage: 1 DF, 2X/DAY
     Route: 048
     Dates: start: 19940101, end: 20030411
  3. ALDOMET [Suspect]
     Dosage: 250 MG, 2X/DAY
     Route: 048
     Dates: start: 19771013, end: 19930101
  4. PRAVASTATIN [Concomitant]
  5. BISOPROLOL FUMARATE [Concomitant]
  6. MEDIATOR [Suspect]
     Dosage: 150 MG, 2X/DAY
     Route: 048
     Dates: start: 19780930, end: 19790519
  7. SINTROM [Suspect]
     Dosage: UNK
     Route: 048
     Dates: start: 19830611
  8. IKOREL [Suspect]
     Dosage: 10 MG, 2X/DAY
     Route: 048
     Dates: start: 20020315
  9. CYCLO 3 [Suspect]
     Dosage: 1 DF, 2X/DAY
     Route: 048
     Dates: start: 19940101
  10. ACETYLSALICYLATE LYSINE [Concomitant]
  11. CORDARONE [Suspect]
     Dosage: 200 MG, UNK
     Route: 048
     Dates: start: 19980101, end: 20030411
  12. COZAAR [Suspect]
     Dosage: 50 MG, 1X/DAY
     Route: 048
     Dates: start: 19980101
  13. ISOPTIN [Suspect]
     Dosage: 120 MG, 2X/DAY
     Route: 048
     Dates: start: 19980304, end: 20010316
  14. PLAVIX [Concomitant]
  15. AMLODIPINE BESYLATE [Suspect]
     Dosage: 5 MG, UNK
     Route: 048
     Dates: start: 19940101
  16. MEDIATOR [Suspect]
     Indication: TYPE 2 DIABETES MELLITUS
     Dosage: 150 MG, 3X/DAY
     Route: 048
     Dates: start: 19771013, end: 19780930
  17. ADANCOR [Suspect]
     Dosage: 10 MG, UNK
     Route: 048
     Dates: end: 19980304
  18. DIAMICRON [Suspect]
     Indication: TYPE 2 DIABETES MELLITUS
     Dosage: 0.5 DF, 1X/DAY
     Route: 048
     Dates: start: 19780101, end: 20060101
  19. TANAKAN [Suspect]
     Dosage: 50 GTT, 3X/DAY
     Route: 048
     Dates: start: 19940101
  20. RIBATRAN [Suspect]
     Dosage: 1 DF, 2X/DAY
     Route: 048
  21. NEURONTIN [Suspect]
     Indication: TREMOR
     Dosage: 300 MG, 3X/DAY
     Route: 048
     Dates: start: 20030301
  22. PROPRANOLOL HCL [Suspect]
     Dosage: UNK
     Route: 048
     Dates: start: 19930101
  23. PREVISCAN [Suspect]
     Dosage: 20 MG, UNK
     Route: 048
     Dates: start: 19940101
  24. DIGOXIN [Suspect]
     Dosage: UNK
     Route: 048
     Dates: start: 20030411
  25. LERCANIDIPINE [Suspect]
     Dosage: 10 MG, 1X/DAY
     Route: 048
     Dates: start: 20010316
  26. NEXIUM [Concomitant]

REACTIONS (4)
  - AORTIC VALVE DISEASE [None]
  - MITRAL VALVE DISEASE [None]
  - PULMONARY HYPERTENSION [None]
  - TRICUSPID VALVE DISEASE [None]
